FAERS Safety Report 16332793 (Version 9)
Quarter: 2020Q3

REPORT INFORMATION
  Report Type: Spontaneous
  Country: US (occurrence: US)
  Receive Date: 20190520
  Receipt Date: 20200714
  Transmission Date: 20201102
  Serious: Yes (Other)
  Sender: FDA-Public Use
  Company Number: US-PFIZER INC-2019209171

PATIENT
  Age: 53 Year
  Sex: Male
  Weight: 72.56 kg

DRUGS (3)
  1. PREDNISONE. [Concomitant]
     Active Substance: PREDNISONE
     Dosage: 1 DF, DAILY
  2. XELJANZ XR [Suspect]
     Active Substance: TOFACITINIB CITRATE
     Indication: RHEUMATOID ARTHRITIS
     Dosage: 11 MG, DAILY
     Dates: end: 20200624
  3. MELOXICAM. [Concomitant]
     Active Substance: MELOXICAM
     Dosage: 1 DF, DAILY

REACTIONS (10)
  - Skin discolouration [Unknown]
  - Feeling abnormal [Unknown]
  - Gait disturbance [Unknown]
  - COVID-19 [Unknown]
  - Discomfort [Unknown]
  - Illness [Unknown]
  - Peripheral swelling [Unknown]
  - Loss of personal independence in daily activities [Unknown]
  - Memory impairment [Unknown]
  - Joint swelling [Unknown]

NARRATIVE: CASE EVENT DATE: 202006
